FAERS Safety Report 4525618-7 (Version None)
Quarter: 2004Q4

REPORT INFORMATION
  Report Type: 
  Country: None (occurrence: None)
  Receive Date: 20041116
  Receipt Date: 20041012
  Transmission Date: 20050328
  Serious: No
  Sender: FDA-Public Use
  Company Number: S04-USA-06670-01

PATIENT
  Age: 88 Year
  Sex: Female

DRUGS (11)
  1. NAMENDA [Suspect]
     Indication: DEMENTIA ALZHEIMER'S TYPE
     Dosage: 10 MG BID PO
     Route: 048
     Dates: start: 20041008
  2. NAMENDA [Suspect]
     Indication: DEMENTIA ALZHEIMER'S TYPE
     Dosage: 5 MG QD PO
     Route: 048
     Dates: start: 20040917, end: 20040923
  3. NAMENDA [Suspect]
     Indication: DEMENTIA ALZHEIMER'S TYPE
     Dosage: 5 MG BID PO
     Route: 048
     Dates: start: 20040924, end: 20040930
  4. NAMENDA [Suspect]
     Indication: DEMENTIA ALZHEIMER'S TYPE
     Dosage: 15 MG QD PO
     Route: 048
     Dates: start: 20041001, end: 20041007
  5. ASPIRIN [Concomitant]
  6. CALTRATE (CALCIUM CARBONATE) [Concomitant]
  7. RANITIDINE [Concomitant]
  8. ALTACE (RAMIPRIL) [Concomitant]
  9. FOLIC ACID [Concomitant]
  10. VITAMIN E [Concomitant]
  11. OCULARPROTECT [Concomitant]

REACTIONS (1)
  - DIZZINESS [None]
